FAERS Safety Report 14698099 (Version 1)
Quarter: 2018Q1

REPORT INFORMATION
  Report Type: Report from Study
  Country: None (occurrence: US)
  Receive Date: 20180330
  Receipt Date: 20180330
  Transmission Date: 20180509
  Serious: Yes (Other)
  Sender: FDA-Public Use
  Company Number: US-ABBVIE-18K-163-2240292-00

PATIENT
  Age: 51 Year
  Sex: Female

DRUGS (1)
  1. HUMIRA [Suspect]
     Active Substance: ADALIMUMAB
     Indication: CROHN^S DISEASE
     Route: 058
     Dates: start: 201711

REACTIONS (22)
  - Cardiac stress test abnormal [Recovering/Resolving]
  - Dizziness [Recovered/Resolved]
  - Hyperhidrosis [Recovered/Resolved]
  - Coronary artery occlusion [Recovering/Resolving]
  - Feeling hot [Recovering/Resolving]
  - Dizziness [Recovered/Resolved]
  - Dizziness [Recovered/Resolved]
  - Electrocardiogram abnormal [Recovering/Resolving]
  - Hypoaesthesia [Recovered/Resolved]
  - Hypoaesthesia [Recovered/Resolved]
  - Chest pain [Recovering/Resolving]
  - Chest discomfort [Recovering/Resolving]
  - Computerised tomogram coronary artery abnormal [Not Recovered/Not Resolved]
  - Eye irritation [Recovering/Resolving]
  - Hypotonia [Recovered/Resolved]
  - Insomnia [Not Recovered/Not Resolved]
  - Chest discomfort [Recovering/Resolving]
  - Palpitations [Recovering/Resolving]
  - Nausea [Recovered/Resolved]
  - Paraesthesia [Recovered/Resolved]
  - Heart rate irregular [Recovering/Resolving]
  - Dermatitis psoriasiform [Not Recovered/Not Resolved]

NARRATIVE: CASE EVENT DATE: 20180123
